FAERS Safety Report 19497227 (Version 2)
Quarter: 2021Q3

REPORT INFORMATION
  Report Type: Spontaneous
  Country: GB (occurrence: GB)
  Receive Date: 20210706
  Receipt Date: 20210730
  Transmission Date: 20211014
  Serious: Yes (Hospitalization)
  Sender: FDA-Public Use
  Company Number: GB-ACCORD-230714

PATIENT
  Age: 81 Year
  Sex: Male
  Weight: 63.1 kg

DRUGS (13)
  1. BISACODYL. [Concomitant]
     Active Substance: BISACODYL
     Dosage: AT NIGHT
  2. QUETIAPINE/QUETIAPINE FUMARATE [Suspect]
     Active Substance: QUETIAPINE FUMARATE
     Dosage: 50MG 2X A DAY, INCREASED FROM 75MG 2 X A DAY TO 100MG 2 X A DAY 5 DAYS?PRIOR TO FALL
  3. MACROGOL/MACROGOL STEARATE [Concomitant]
     Active Substance: POLYETHYLENE GLYCOLS
     Dosage: SACHETS
  4. PARACETAMOL [Concomitant]
     Active Substance: ACETAMINOPHEN
     Indication: ILL-DEFINED DISORDER
     Dosage: AS NECESSARY
  5. BENDROFLUMETHIAZIDE [Concomitant]
     Active Substance: BENDROFLUMETHIAZIDE
     Indication: ILL-DEFINED DISORDER
  6. MEMANTINE/MEMANTINE HYDROCHLORIDE [Concomitant]
     Active Substance: MEMANTINE HYDROCHLORIDE
  7. TAMSULOSIN/TAMSULOSIN HYDROCHLORIDE [Concomitant]
     Active Substance: TAMSULOSIN HYDROCHLORIDE
  8. SERTRALINE [Suspect]
     Active Substance: SERTRALINE HYDROCHLORIDE
     Indication: DEPRESSION
     Dosage: 150MG
     Route: 048
     Dates: start: 20201027, end: 20210615
  9. ATENOLOL/ATENOLOL HYDROCHLORIDE [Concomitant]
     Active Substance: ATENOLOL HYDROCHLORIDE
  10. ATORVASTATIN [Concomitant]
     Active Substance: ATORVASTATIN
  11. MELATONIN [Concomitant]
     Active Substance: MELATONIN
  12. MIDAZOLAM. [Concomitant]
     Active Substance: MIDAZOLAM
     Dosage: AS NECESSARY
  13. LORAZEPAM. [Concomitant]
     Active Substance: LORAZEPAM
     Dosage: AS NECESSARY

REACTIONS (7)
  - Subdural haematoma [Recovered/Resolved with Sequelae]
  - Bradycardia [Unknown]
  - Orthostatic hypotension [Unknown]
  - Extrapyramidal disorder [Unknown]
  - Fall [Unknown]
  - Somnolence [Unknown]
  - Mixed dementia [Unknown]

NARRATIVE: CASE EVENT DATE: 20210521
